FAERS Safety Report 8604144-X (Version None)
Quarter: 2012Q3

REPORT INFORMATION
  Report Type: 
  Country: None (occurrence: None)
  Receive Date: 20120806
  Receipt Date: 20120723
  Transmission Date: 20120928
  Serious: Yes (Disabling, Other)
  Sender: FDA-Public Use
  Company Number: 2012MA009374

PATIENT
  Age: 75 Year
  Sex: Female

DRUGS (6)
  1. PERINDOPRIL ERBUMINE [Concomitant]
  2. RAMIPRIL [Suspect]
     Indication: LEFT VENTRICULAR DYSFUNCTION
     Dosage: 7.5 MG; PO
     Route: 048
     Dates: start: 20120125, end: 20120530
  3. ALBUTEROL SULATE [Concomitant]
  4. CALCICHEW D3 [Concomitant]
  5. BENDROFLUMETHIAZIDE [Concomitant]
  6. BECLOMETHASONE DIPROPIONATE [Concomitant]

REACTIONS (1)
  - OEDEMA PERIPHERAL [None]
